FAERS Safety Report 5118923-7 (Version None)
Quarter: 2006Q3

REPORT INFORMATION
  Report Type: 
  Country: None (occurrence: None)
  Receive Date: 20060927
  Receipt Date: 20060901
  Transmission Date: 20061208
  Serious: Yes (Hospitalization, Other)
  Sender: FDA-Public Use
  Company Number: 2005133126

PATIENT
  Age: 83 Year
  Sex: Female
  Weight: 65.7716 kg

DRUGS (5)
  1. CELEBREX [Suspect]
     Indication: ARTHRITIS
     Dosage: 200 MG (200 MG, 1 IN 1 D), ORAL
     Route: 048
     Dates: start: 20030225
  2. CELEBREX [Suspect]
     Indication: PAIN
     Dosage: 200 MG (200 MG, 1 IN 1 D), ORAL
     Route: 048
     Dates: start: 20030225
  3. BEXTRA [Suspect]
     Indication: ARTHRITIS
     Dosage: 10 MG (10 MG), ORAL
     Route: 048
     Dates: start: 20030317
  4. BEXTRA [Suspect]
     Indication: PAIN
     Dosage: 10 MG (10 MG), ORAL
     Route: 048
     Dates: start: 20030317
  5. VIOXX [Suspect]
     Dosage: ORAL
     Route: 048

REACTIONS (4)
  - CARDIOVASCULAR DISORDER [None]
  - CEREBROVASCULAR ACCIDENT [None]
  - THROMBOSIS [None]
  - VASCULAR INJURY [None]
